FAERS Safety Report 24798819 (Version 2)
Quarter: 2025Q1

REPORT INFORMATION
  Report Type: Spontaneous
  Country: US (occurrence: US)
  Receive Date: 20250102
  Receipt Date: 20250110
  Transmission Date: 20250409
  Serious: No
  Sender: SUNOVION
  Company Number: US-SMPA-2024SPA006755AA

PATIENT

DRUGS (1)
  1. ORGOVYX [Suspect]
     Active Substance: RELUGOLIX
     Indication: Prostate cancer
     Dosage: 120 MG, QD (1 DAILY)
     Route: 048

REACTIONS (7)
  - Sinusitis [Unknown]
  - Nasal congestion [Unknown]
  - Feeling of body temperature change [Unknown]
  - Decreased appetite [Unknown]
  - Sleep deficit [Unknown]
  - Hot flush [Unknown]
  - Fatigue [Unknown]
